FAERS Safety Report 21233886 (Version 1)
Quarter: 2022Q3

REPORT INFORMATION
  Report Type: Spontaneous
  Country: NL (occurrence: NL)
  Receive Date: 20220819
  Receipt Date: 20220819
  Transmission Date: 20221026
  Serious: Yes (Congenital Anomaly)
  Sender: FDA-Public Use
  Company Number: NL-UCBSA-2022046165

PATIENT
  Sex: Female

DRUGS (1)
  1. CIMZIA [Suspect]
     Active Substance: CERTOLIZUMAB PEGOL
     Indication: Product used for unknown indication
     Dosage: UNK

REACTIONS (18)
  - Congenital anomaly [Unknown]
  - Teratogenicity [Unknown]
  - Cardiac disorder [Unknown]
  - Vascular malformation [Unknown]
  - Gastrointestinal malformation [Unknown]
  - Congenital musculoskeletal disorder [Unknown]
  - Connective tissue disorder [Unknown]
  - Renal disorder [Unknown]
  - Urinary tract disorder [Unknown]
  - Reproductive tract disorder [Unknown]
  - Nervous system disorder [Unknown]
  - Ear disorder [Unknown]
  - Respiratory disorder [Unknown]
  - Eye disorder [Unknown]
  - Blood disorder [Unknown]
  - Lymphatic disorder [Unknown]
  - Adverse event [Unknown]
  - Maternal exposure during pregnancy [Unknown]
